FAERS Safety Report 5903961-4 (Version None)
Quarter: 2008Q3

REPORT INFORMATION
  Report Type: 
  Country: None (occurrence: None)
  Receive Date: 20080930
  Receipt Date: 20080924
  Transmission Date: 20090109
  Serious: Yes (Life-Threatening, Hospitalization)
  Sender: FDA-Public Use
  Company Number: NO-GILEAD-E2B_00000199

PATIENT
  Sex: Female

DRUGS (4)
  1. TRUVADA [Suspect]
     Indication: HIV INFECTION
     Route: 048
     Dates: start: 20060404, end: 20080804
  2. TRIATEC [Suspect]
     Indication: HYPERTENSION
     Route: 048
     Dates: start: 20070101, end: 20080804
  3. EFAVIRENZ [Suspect]
     Indication: HIV INFECTION
     Route: 048
     Dates: start: 20060404, end: 20080804
  4. NORVASC [Concomitant]
     Indication: HYPERTENSION
     Route: 048
     Dates: start: 20030101, end: 20080804

REACTIONS (1)
  - PANCREATITIS ACUTE [None]
